FAERS Safety Report 18107335 (Version 2)
Quarter: 2020Q3

REPORT INFORMATION
  Report Type: Spontaneous
  Country: US (occurrence: US)
  Receive Date: 20200803
  Receipt Date: 20200804
  Transmission Date: 20201103
  Serious: Yes (Hospitalization, Other)
  Sender: FDA-Public Use
  Company Number: US-HIKMA PHARMACEUTICALS USA INC.-US-H14001-20-03588

PATIENT
  Age: 63 Year
  Sex: Female

DRUGS (1)
  1. PREDNISONE. [Suspect]
     Active Substance: PREDNISONE
     Indication: ASTHMA
     Dosage: UNKNOWN
     Route: 065

REACTIONS (3)
  - Atrial fibrillation [Recovering/Resolving]
  - Cardiac steatosis [Recovering/Resolving]
  - Lipoma [Recovering/Resolving]
